FAERS Safety Report 7221795-8 (Version None)
Quarter: 2011Q1

REPORT INFORMATION
  Report Type: 
  Country: None (occurrence: None)
  Receive Date: 20110112
  Receipt Date: 20110104
  Transmission Date: 20110831
  Serious: Yes (Hospitalization, Other)
  Sender: FDA-Public Use
  Company Number: PHHO2011FR00474

PATIENT
  Sex: Female
  Weight: 47 kg

DRUGS (3)
  1. AFINITOR [Suspect]
     Indication: OVARIAN CANCER
     Dosage: 10 MG, QD
     Route: 048
     Dates: start: 20090831, end: 20100706
  2. AFINITOR [Suspect]
     Dosage: 10 MG, QD
     Route: 048
     Dates: start: 20100818
  3. LEVOTHYROX [Concomitant]
     Indication: THYROID NEOPLASM

REACTIONS (13)
  - NAUSEA [None]
  - CEREBRAL HAEMATOMA [None]
  - PARTIAL SEIZURES [None]
  - APHASIA [None]
  - LEUKOCYTOSIS [None]
  - CEREBROVASCULAR ACCIDENT [None]
  - PYREXIA [None]
  - MUSCULOSKELETAL CHEST PAIN [None]
  - GENERAL PHYSICAL CONDITION ABNORMAL [None]
  - HEMIPLEGIA [None]
  - C-REACTIVE PROTEIN INCREASED [None]
  - CONFUSIONAL STATE [None]
  - ELECTROENCEPHALOGRAM ABNORMAL [None]
